FAERS Safety Report 5895628-6 (Version None)
Quarter: 2008Q3

REPORT INFORMATION
  Report Type: 
  Country: None (occurrence: None)
  Receive Date: 20080924
  Receipt Date: 20080320
  Transmission Date: 20090109
  Serious: Yes (Other)
  Sender: FDA-Public Use
  Company Number: US-ASTRAZENECA-2006UW22210

PATIENT
  Age: 656 Month
  Sex: Female
  Weight: 99.8 kg

DRUGS (5)
  1. SEROQUEL [Suspect]
     Indication: SCHIZOPHRENIA
     Dosage: 25 MG TO 100 MG
     Route: 048
     Dates: start: 20030201, end: 20050101
  2. SEROQUEL [Suspect]
     Indication: DEPRESSION
     Dosage: 25 MG TO 100 MG
     Route: 048
     Dates: start: 20030201, end: 20050101
  3. ABILIFY [Concomitant]
     Dates: start: 20031001
  4. NAVANE [Concomitant]
  5. TRIFALON [Concomitant]

REACTIONS (5)
  - BLOOD CHOLESTEROL INCREASED [None]
  - BLOOD TRIGLYCERIDES INCREASED [None]
  - DIABETES MELLITUS [None]
  - EXTRAPYRAMIDAL DISORDER [None]
  - POST-TRAUMATIC STRESS DISORDER [None]
